FAERS Safety Report 4465305-7 (Version None)
Quarter: 2004Q3

REPORT INFORMATION
  Report Type: 
  Country: None (occurrence: None)
  Receive Date: 20040929
  Receipt Date: 20040921
  Transmission Date: 20050211
  Serious: Yes (Hospitalization, Other)
  Sender: FDA-Public Use
  Company Number: USA-2004-0016917

PATIENT
  Age: 63 Year
  Sex: Male

DRUGS (2)
  1. OXYCONTIN [Suspect]
     Indication: PAIN
     Dosage: SEE IMAGE
  2. PERCOCET [Suspect]
     Indication: MIGRAINE
     Dates: start: 20041111

REACTIONS (6)
  - HEPATIC FUNCTION ABNORMAL [None]
  - INADEQUATE ANALGESIA [None]
  - MIGRAINE [None]
  - OVERDOSE [None]
  - RESPIRATORY DEPRESSION [None]
  - SOMNOLENCE [None]
